FAERS Safety Report 8268757-X (Version None)
Quarter: 2012Q2

REPORT INFORMATION
  Report Type: 
  Country: None (occurrence: None)
  Receive Date: 20120409
  Receipt Date: 20120409
  Transmission Date: 20120825
  Serious: Yes (Disabling)
  Sender: FDA-Public Use
  Company Number: None

PATIENT
  Age: 51 Year
  Sex: Female
  Weight: 68.946 kg

DRUGS (1)
  1. DEXFERRATIN [Suspect]
     Indication: IRON DEFICIENCY ANAEMIA
     Dosage: 25 MG/ 50 ML
     Route: 042
     Dates: start: 20120402, end: 20120402

REACTIONS (1)
  - URTICARIA [None]
